FAERS Safety Report 12556006 (Version 3)
Quarter: 2016Q3

REPORT INFORMATION
  Report Type: Report from Study
  Country: US (occurrence: US)
  Receive Date: 20160714
  Receipt Date: 20160819
  Transmission Date: 20161109
  Serious: Yes (Other)
  Sender: FDA-Public Use
  Company Number: US-JNJFOC-20160704588

PATIENT
  Sex: Male
  Weight: 89.81 kg

DRUGS (2)
  1. VORICONAZOLE. [Suspect]
     Active Substance: VORICONAZOLE
     Indication: GASTROINTESTINAL FUNGAL INFECTION
     Route: 065
  2. REMICADE [Suspect]
     Active Substance: INFLIXIMAB
     Indication: PSORIATIC ARTHROPATHY
     Dosage: OCT-2014 OR NOV-2014
     Route: 042
     Dates: start: 2014, end: 201502

REACTIONS (5)
  - General physical condition abnormal [Unknown]
  - Off label use [Unknown]
  - Product use issue [Unknown]
  - Abnormal loss of weight [Recovered/Resolved]
  - Gastrointestinal fungal infection [Unknown]

NARRATIVE: CASE EVENT DATE: 2014
